FAERS Safety Report 7267856-9 (Version None)
Quarter: 2011Q1

REPORT INFORMATION
  Report Type: 
  Country: None (occurrence: None)
  Receive Date: 20110201
  Receipt Date: 20110125
  Transmission Date: 20110831
  Serious: Yes (Death)
  Sender: FDA-Public Use
  Company Number: B0696991A

PATIENT
  Sex: Male

DRUGS (5)
  1. GENTAMICIN [Concomitant]
     Indication: FEBRILE NEUTROPENIA
     Dosage: 150MG PER DAY
     Route: 042
     Dates: start: 20110114, end: 20110118
  2. MEROPENEM [Concomitant]
     Indication: FEBRILE NEUTROPENIA
     Dosage: 500MG THREE TIMES PER DAY
     Route: 042
     Dates: start: 20110117
  3. ZANAMIVIR [Suspect]
     Route: 042
     Dates: start: 20110119
  4. CEFTAZIDIME [Concomitant]
     Indication: FEBRILE NEUTROPENIA
     Dosage: 1500MG THREE TIMES PER DAY
     Route: 042
     Dates: start: 20110114
  5. VANCOMYCIN [Concomitant]
     Dosage: 400MG THREE TIMES PER DAY
     Route: 042
     Dates: start: 20110118

REACTIONS (2)
  - PNEUMONIA [None]
  - RESPIRATORY FAILURE [None]
